FAERS Safety Report 7401275-7 (Version None)
Quarter: 2011Q2

REPORT INFORMATION
  Report Type: 
  Country: None (occurrence: None)
  Receive Date: 20110407
  Receipt Date: 20110404
  Transmission Date: 20111010
  Serious: Yes (Hospitalization)
  Sender: FDA-Public Use
  Company Number: CH-BAYER-2011-026431

PATIENT
  Sex: Female

DRUGS (1)
  1. GADOVIST [Suspect]
     Indication: PRODUCT USED FOR UNKNOWN INDICATION
     Dosage: 7.5 ML, ONCE
     Route: 042
     Dates: start: 20110325, end: 20110325

REACTIONS (4)
  - HYPERHIDROSIS [None]
  - ANXIETY [None]
  - HYPERVENTILATION [None]
  - VOMITING [None]
